FAERS Safety Report 5331502-1 (Version None)
Quarter: 2007Q2

REPORT INFORMATION
  Report Type: 
  Country: None (occurrence: None)
  Receive Date: 20070522
  Receipt Date: 20070514
  Transmission Date: 20071010
  Serious: Yes (Hospitalization)
  Sender: FDA-Public Use
  Company Number: FR-ELI_LILLY_AND_COMPANY-FR200705003279

PATIENT
  Age: 85 Year
  Sex: Female

DRUGS (6)
  1. UMULINE NPH [Suspect]
     Dosage: UNK, 2/D
     Route: 058
  2. UMULINE NPH [Suspect]
     Dosage: UNK, EACH MORNING
     Route: 058
  3. PREVISCAN [Concomitant]
     Dosage: 0.5 D/F, DAILY (1/D)
     Route: 048
     Dates: end: 20070208
  4. PERINDOPRIL ERBUMINE [Concomitant]
     Dosage: 1 D/F, 3/D
     Route: 048
  5. LASIX [Concomitant]
     Dosage: 1 D/F, DAILY (1/D)
     Route: 048
  6. RISPERDAL [Concomitant]
     Dosage: 1 D/F, DAILY (1/D)
     Route: 048

REACTIONS (8)
  - ANOREXIA [None]
  - ASTHENIA [None]
  - DEHYDRATION [None]
  - FALL [None]
  - HYPOGLYCAEMIA [None]
  - MALAISE [None]
  - VOMITING [None]
  - WEIGHT DECREASED [None]
